FAERS Safety Report 11831673 (Version 1)
Quarter: 2015Q4

REPORT INFORMATION
  Report Type: Spontaneous
  Country: US (occurrence: None)
  Receive Date: 20151211
  Receipt Date: 20151211
  Transmission Date: 20160305
  Serious: Yes (Hospitalization, Other)
  Sender: FDA-Public Use
  Company Number: None

PATIENT
  Age: 33 Year
  Sex: Male
  Weight: 79 kg

DRUGS (13)
  1. PLEXUS SLIM SUPPMENET [Concomitant]
  2. TUMERIC [Concomitant]
     Active Substance: TURMERIC
  3. DEXAMETHASONE. [Concomitant]
     Active Substance: DEXAMETHASONE
  4. SUPPLEMENTS [Concomitant]
     Active Substance: UNSPECIFIED INGREDIENT
  5. X-FACTOR [Concomitant]
  6. ESSENTIAL OILS (PATCHOULI, OREGANO, ORGANE, GRAPEFRUIT, BASIL, CINAMON, DILL, FRANKINCENSE, GERANIUM, LEMON, PINE, TEA TREE, THIEVES) [Concomitant]
  7. ESOMEPRAZOLE [Concomitant]
     Active Substance: ESOMEPRAZOLE
  8. LACTOBACILLUS ACIDOPILUS [Concomitant]
  9. ZONISAMIDE. [Concomitant]
     Active Substance: ZONISAMIDE
  10. LEVETIRACETAM. [Concomitant]
     Active Substance: LEVETIRACETAM
  11. LEVETIRACETAM 500 MG [Suspect]
     Active Substance: LEVETIRACETAM
     Indication: CONVULSION PROPHYLAXIS
     Route: 048
  12. BIO CLEANSE [Concomitant]
  13. DIAZEPAM. [Concomitant]
     Active Substance: DIAZEPAM

REACTIONS (1)
  - Transaminases increased [None]

NARRATIVE: CASE EVENT DATE: 20151028
